FAERS Safety Report 10614396 (Version 3)
Quarter: 2020Q3

REPORT INFORMATION
  Report Type: Spontaneous
  Country: DE (occurrence: DE)
  Receive Date: 20141129
  Receipt Date: 20200718
  Transmission Date: 20201102
  Serious: Yes (Death, Congenital Anomaly, Other)
  Sender: FDA-Public Use
  Company Number: DE-ACCORD-027343

PATIENT
  Age: 1 Day
  Sex: Male
  Weight: 2.34 kg

DRUGS (13)
  1. BETAMETHASONE. [Concomitant]
     Active Substance: BETAMETHASONE
     Indication: MATERNAL THERAPY TO ENHANCE FOETAL LUNG MATURITY
     Dosage: IN WEEK 25+3, 25+4 AND AGAIN IN WEEK 28+0
     Route: 064
     Dates: end: 20140114
  2. AMPICILLIN [Concomitant]
     Active Substance: AMPICILLIN
     Indication: ANTIBIOTIC PROPHYLAXIS
     Route: 064
     Dates: start: 20140114, end: 20140114
  3. AZATHIOPRINE. [Suspect]
     Active Substance: AZATHIOPRINE
     Indication: PROPHYLAXIS AGAINST TRANSPLANT REJECTION
     Dosage: 100 MG/D (BIS 50) SINCE 2012. DOSAGE WAS INCREASED DURING PREGNANCY FROM 50 TO 100 MG/D
     Route: 064
     Dates: start: 20130702, end: 20140114
  4. ADALAT [Concomitant]
     Active Substance: NIFEDIPINE
     Indication: TOCOLYSIS
     Route: 064
  5. BELOC?ZOK MITE [Concomitant]
     Active Substance: METOPROLOL SUCCINATE
     Indication: RENAL HYPERTENSION
     Dosage: 70.75 MG/D (47.5?0?23.75)?PROBABLY THERAPY STARTED EARLIER.
     Route: 064
     Dates: start: 20140114, end: 20140114
  6. METHYLDOPA. [Suspect]
     Active Substance: METHYLDOPA
     Indication: RENAL HYPERTENSION
     Dosage: 500 MG/D (2 X 250 MG) SINCE 2010
     Route: 064
     Dates: start: 20130702, end: 20140114
  7. PROGRAF [Suspect]
     Active Substance: TACROLIMUS
     Indication: PROPHYLAXIS AGAINST TRANSPLANT REJECTION
     Dosage: 5.5 MG/D (3?0?2.5 MG/D)/ MOTHER SINCE 2007
     Route: 064
     Dates: start: 20130702, end: 20140114
  8. PARTUSISTEN [Concomitant]
     Active Substance: FENOTEROL
     Indication: TOCOLYSIS
     Route: 064
     Dates: start: 20140114, end: 20140114
  9. AMLODIPINE [Concomitant]
     Active Substance: AMLODIPINE BESYLATE
     Indication: RENAL HYPERTENSION
     Dosage: 7.5 MG/D (2.5?0?5)
     Route: 064
  10. L?THYROXIN 25 HENNING [Concomitant]
     Indication: HYPOTHYROIDISM
     Dosage: 25 UG/D (BIS 12.5)
     Route: 064
     Dates: start: 20130702, end: 20140114
  11. METOPROLOL. [Suspect]
     Active Substance: METOPROLOL
     Indication: RENAL HYPERTENSION
     Dosage: 142.5 MG/D (95?0?47.5) SINCE 2012. THERAPY PROBABLY ONGOING?OR CHANGED TO BELOC ZOK MITE
     Route: 064
     Dates: start: 20130702, end: 20131217
  12. DEKRISTOL [Concomitant]
     Active Substance: CHOLECALCIFEROL
     Indication: VITAMIN SUPPLEMENTATION
     Dosage: 20000 IU /WK SINCE 2007
     Route: 064
     Dates: start: 20130702, end: 20131217
  13. DAS GESUNDE PLUS ? FOLSAURE 600 [Concomitant]
     Indication: PROPHYLAXIS OF NEURAL TUBE DEFECT
     Dosage: DAILY DOSE: 0.6 MG MILLIGRAM(S) EVERY DAY
     Route: 064
     Dates: start: 20130702, end: 20131217

REACTIONS (6)
  - Congenital cystic lung [Fatal]
  - Large for dates baby [Unknown]
  - Neonatal respiratory failure [Fatal]
  - Polyhydramnios [Fatal]
  - Foetal exposure during pregnancy [Unknown]
  - Hydrops foetalis [Fatal]

NARRATIVE: CASE EVENT DATE: 20130702
